FAERS Safety Report 10012586 (Version 4)
Quarter: 2014Q2

REPORT INFORMATION
  Report Type: Spontaneous
  Country: JP (occurrence: JP)
  Receive Date: 20140314
  Receipt Date: 20140522
  Transmission Date: 20141212
  Serious: Yes (Other)
  Sender: FDA-Public Use
  Company Number: JP-PFIZER INC-2014073545

PATIENT
  Age: 68 Year
  Sex: Female
  Weight: 52.2 kg

DRUGS (13)
  1. AMLODIN [Suspect]
     Dosage: 5 MG, 2X/DAY (AFTER BREAKFAST AND AFTER DINNER 0.5 TABLET/TIME)
  2. PREDNISOLONE [Suspect]
     Indication: IMMUNOSUPPRESSION
     Dosage: 5 MG, 2X/DAY (AFTER BREAKFAST AND AFTER DINNER 0.5 TABLET/TIME  )
  3. CYCLOSPORINE [Suspect]
     Indication: IMMUNOSUPPRESSION
     Dosage: 25 MG, 2X/DAY (AFTER BREAKFAST AND AFTER DINNER 1 CAPSULE/TIME)
  4. AZATHIOPRINE [Suspect]
     Indication: IMMUNOSUPPRESSION
     Dosage: 50 MG, 1X/DAY (AFTER BREAKFAST 0.5 TABLET/TIME)
  5. ATENOLOL [Concomitant]
     Dosage: 25 MG, 1X/DAY (AFTER BREAKFAST 1 TABLET/TIME)
  6. PRAVASTATIN [Concomitant]
     Dosage: 10 MG, 1X/DAY (BEFORE BED 0.5 TABLET/TIME)
  7. ALFACALCIDOL [Concomitant]
     Dosage: 1 UG, 1X/DAY (AFTER BREAKFAST 1 CAPSULE/TIME)
  8. PREGABALIN [Concomitant]
     Dosage: 75 MG, 2X/DAY (AFTER BREAKFAST AND AFTER DINNER 1 CAPSULE/TIME)
  9. CLOPIDOGREL [Concomitant]
     Dosage: 75 MG, 1X/DAY (AFTER BREAKFAST 1 TABLET/TIME)
  10. FAMOTIDINE [Concomitant]
     Dosage: 20 MG, 2X/DAY (AFTER BREAKFAST AND AFTER DINNER 1 TABLET/TIME)
  11. RISEDRONATE [Concomitant]
     Dosage: 17.5 MG, WEEKLY (17.5 MG ONCE WEEKLY, UPON GETTING UP IN THE MORNING (ON MONDAY) 1 TABLET/TIME)
  12. ELCATONIN [Concomitant]
     Dosage: (20 UNITS ELCATONIN)/TIME WEEKLY
     Route: 030
  13. ELCATONIN [Concomitant]
     Dosage: NO. 3 FLUID THERAPY BY INTRAVENOUS DRIP AT RATE OF 500 ML EVERY 24 HOURS WHEN FEVER
     Route: 041

REACTIONS (1)
  - Pyelonephritis [Unknown]
